FAERS Safety Report 5727468-2 (Version None)
Quarter: 2008Q2

REPORT INFORMATION
  Report Type: 
  Country: None (occurrence: None)
  Receive Date: 20080501
  Receipt Date: 20070511
  Transmission Date: 20081010
  Serious: Yes (Hospitalization)
  Sender: FDA-Public Use
  Company Number: PHEH2007US07353

PATIENT
  Age: 50 Year
  Sex: Male

DRUGS (1)
  1. LOTREL [Suspect]
     Dosage: 5/10 MG, ORAL
     Route: 048

REACTIONS (2)
  - ANGIOEDEMA [None]
  - ENDOTRACHEAL INTUBATION [None]
